FAERS Safety Report 25377024 (Version 1)
Quarter: 2025Q2

REPORT INFORMATION
  Report Type: Report from Study
  Country: CO (occurrence: CO)
  Receive Date: 20250530
  Receipt Date: 20250530
  Transmission Date: 20250716
  Serious: Yes (Hospitalization)
  Sender: BIOVITRUM
  Company Number: CO-AstraZeneca-CH-00877146A

PATIENT
  Age: 5 Month
  Sex: Male
  Weight: 4 kg

DRUGS (1)
  1. PALIVIZUMAB [Suspect]
     Active Substance: PALIVIZUMAB
     Indication: Respiratory syncytial virus immunisation
     Route: 030
     Dates: start: 20250425

REACTIONS (3)
  - Underweight [Recovering/Resolving]
  - Dehydration [Recovering/Resolving]
  - Oliguria [Recovering/Resolving]

NARRATIVE: CASE EVENT DATE: 20250522
